FAERS Safety Report 13252776 (Version 1)
Quarter: 2017Q1

REPORT INFORMATION
  Report Type: Spontaneous
  Country: US (occurrence: US)
  Receive Date: 20170220
  Receipt Date: 20170220
  Transmission Date: 20170428
  Serious: Yes (Death, Life-Threatening, Hospitalization)
  Sender: FDA-Public Use
  Company Number: US-BAYER-2017-029755

PATIENT
  Age: 61 Year
  Sex: Male
  Weight: 79.2 kg

DRUGS (5)
  1. ACETYLSALICYLIC ACID (} 100 MG) [Suspect]
     Active Substance: ASPIRIN
     Dosage: UNK
  2. PEMBROLIZUMAB. [Suspect]
     Active Substance: PEMBROLIZUMAB
     Indication: NEUROENDOCRINE CARCINOMA OF THE SKIN
     Dosage: 2 MG/KG, Q3WK
     Route: 042
     Dates: start: 20150909, end: 20150909
  3. PEMBROLIZUMAB. [Suspect]
     Active Substance: PEMBROLIZUMAB
     Indication: NEUROENDOCRINE CARCINOMA OF THE SKIN
     Dosage: 2 MG/KG, Q3WK
     Route: 042
     Dates: start: 20150814, end: 20150814
  4. PEMBROLIZUMAB. [Suspect]
     Active Substance: PEMBROLIZUMAB
     Indication: NEUROENDOCRINE CARCINOMA OF THE SKIN
     Dosage: 2 MG/KG, Q3WK
     Route: 042
     Dates: start: 20150724, end: 20150724
  5. PEMBROLIZUMAB. [Suspect]
     Active Substance: PEMBROLIZUMAB
     Indication: NEUROENDOCRINE CARCINOMA OF THE SKIN
     Dosage: 2 MG/KG, Q3WK
     Route: 042
     Dates: start: 20150630, end: 20150630

REACTIONS (15)
  - Small intestinal haemorrhage [Recovered/Resolved]
  - Hypercalcaemia [Recovered/Resolved]
  - Dysphagia [Recovered/Resolved]
  - Anaemia [Recovered/Resolved]
  - Hyperuricaemia [Recovered/Resolved]
  - Acute kidney injury [Recovered/Resolved]
  - Pyrexia [Recovered/Resolved]
  - Hyperglycaemia [Recovered/Resolved]
  - Neuroendocrine carcinoma of the skin [Fatal]
  - Fatigue [Recovered/Resolved]
  - Tumour pain [Recovered/Resolved]
  - Dehydration [Recovered/Resolved]
  - Small intestinal haemorrhage [Recovered/Resolved]
  - Embolism [Recovered/Resolved]
  - Delirium [Recovered/Resolved]

NARRATIVE: CASE EVENT DATE: 20150724
